FAERS Safety Report 21370798 (Version 2)
Quarter: 2022Q4

REPORT INFORMATION
  Report Type: Spontaneous
  Country: US (occurrence: US)
  Receive Date: 20220923
  Receipt Date: 20221011
  Transmission Date: 20230113
  Serious: No
  Sender: FDA-Public Use
  Company Number: US-SA-SAC20220919001119

PATIENT
  Sex: Male

DRUGS (3)
  1. DUPIXENT [Suspect]
     Active Substance: DUPILUMAB
     Indication: Dermatitis atopic
     Dosage: 300 MG, QOW
     Route: 058
  2. VITAMINS NOS [Concomitant]
     Active Substance: VITAMINS
  3. ELIDEL [Concomitant]
     Active Substance: PIMECROLIMUS

REACTIONS (6)
  - Pruritus [Unknown]
  - Eczema [Unknown]
  - Rash [Unknown]
  - Suture removal [Unknown]
  - Therapeutic response decreased [Unknown]
  - Drug ineffective [Unknown]
